FAERS Safety Report 7273079-X (Version None)
Quarter: 2011Q1

REPORT INFORMATION
  Report Type: 
  Country: None (occurrence: None)
  Receive Date: 20110203
  Receipt Date: 20101222
  Transmission Date: 20110831
  Serious: Yes (Other)
  Sender: FDA-Public Use
  Company Number: US-BAXTER-2010BH003606

PATIENT
  Age: 78 Year
  Sex: Female
  Weight: 68 kg

DRUGS (6)
  1. HEPARIN SODIUM INJECTION [Suspect]
     Indication: PRODUCT USED FOR UNKNOWN INDICATION
     Route: 042
     Dates: start: 20080123, end: 20080131
  2. HEPARIN SODIUM INJECTION [Suspect]
     Route: 065
     Dates: start: 20080101, end: 20080201
  3. HEPARIN SODIUM INJECTION [Suspect]
     Indication: AORTIC VALVE REPLACEMENT
     Route: 042
     Dates: start: 20080123, end: 20080131
  4. HEPARIN SODIUM INJECTION [Suspect]
     Route: 065
     Dates: start: 20080101, end: 20080201
  5. HEPARIN SODIUM INJECTION [Suspect]
     Indication: CORONARY ARTERY BYPASS
     Route: 042
     Dates: start: 20080123, end: 20080131
  6. HEPARIN SODIUM INJECTION [Suspect]
     Route: 065
     Dates: start: 20080101, end: 20080201

REACTIONS (6)
  - DRUG HYPERSENSITIVITY [None]
  - DYSPNOEA [None]
  - HEPARIN-INDUCED THROMBOCYTOPENIA [None]
  - ASTHENIA [None]
  - PYREXIA [None]
  - HYPOTENSION [None]
